FAERS Safety Report 8833061 (Version 2)
Quarter: 2012Q4

REPORT INFORMATION
  Report Type: 
  Country: FR (occurrence: FR)
  Receive Date: 20121010
  Receipt Date: 20121015
  Transmission Date: 20130627
  Serious: Yes (Death, Hospitalization, Other)
  Sender: FDA-Public Use
  Company Number: FR-PFIZER INC-2012248960

PATIENT
  Age: 80 Year
  Sex: Male

DRUGS (13)
  1. CORDARONE [Suspect]
     Indication: SUPRAVENTRICULAR TACHYCARDIA
     Dosage: 200 mg, UNK
     Route: 048
  2. XEROQUEL [Suspect]
     Dosage: 50 mg, UNK
     Route: 048
     Dates: end: 20120429
  3. XEROQUEL [Suspect]
     Dosage: 300 mg, daily
     Route: 048
     Dates: start: 20120430, end: 20120502
  4. MOTILIUM [Suspect]
     Dosage: 30 mg, daily
     Route: 048
     Dates: end: 20120505
  5. MOTILIUM [Suspect]
     Dosage: 1 DF, single
     Route: 048
     Dates: start: 20120505, end: 20120505
  6. CRESTOR [Concomitant]
     Dosage: UNK
     Dates: start: 20120417
  7. EBIXA [Concomitant]
     Dosage: UNK
  8. RISPERDALORO [Concomitant]
     Dosage: 4 mg daily
     Dates: start: 20120430, end: 20120503
  9. VALIUM [Concomitant]
     Dosage: 20 mg
     Dates: start: 20120430
  10. TERCIAN [Concomitant]
     Dosage: 20 mg/d
     Dates: start: 20120430, end: 20120502
  11. DAFALGAN [Concomitant]
  12. IMOVANE [Concomitant]
  13. TIAPRIDAL [Concomitant]
     Dosage: UNK
     Dates: end: 20120430

REACTIONS (5)
  - Death [Fatal]
  - Cardiac failure acute [Recovered/Resolved]
  - Electrocardiogram QT prolonged [Recovered/Resolved]
  - Lung disorder [Unknown]
  - Sepsis [Unknown]
